FAERS Safety Report 6805169-7 (Version None)
Quarter: 2010Q2

REPORT INFORMATION
  Report Type: 
  Country: None (occurrence: None)
  Receive Date: 20100628
  Receipt Date: 20070922
  Transmission Date: 20101027
  Serious: Yes (Other)
  Sender: FDA-Public Use
  Company Number: US-PFIZER INC-2007067844

PATIENT
  Sex: Female

DRUGS (4)
  1. XALATAN [Suspect]
     Route: 047
     Dates: start: 20041229
  2. CALAN - SLOW RELEASE [Concomitant]
  3. ADVAIR DISKUS 100/50 [Concomitant]
  4. ALBUTEROL [Concomitant]
     Route: 055

REACTIONS (1)
  - PAIN [None]
